FAERS Safety Report 8795817 (Version 1)
Quarter: 2012Q4

REPORT INFORMATION
  Report Type: 
  Country: FR (occurrence: FR)
  Receive Date: 20120920
  Receipt Date: 20120920
  Transmission Date: 20130627
  Serious: Yes (Hospitalization, Other)
  Sender: FDA-Public Use
  Company Number: FR-009507513-1209FRA005389

PATIENT
  Age: 74 Year
  Sex: Female

DRUGS (8)
  1. CLARITYNE [Suspect]
     Indication: URTICARIA
     Dosage: UNK
     Route: 048
     Dates: start: 20120215
  2. ZITHROMAX [Suspect]
     Indication: OROPHARYNGEAL PAIN
     Dosage: 500 mg, qd
     Route: 048
     Dates: start: 20120215, end: 20120227
  3. ENOXOR [Suspect]
     Indication: OROPHARYNGEAL PAIN
     Dosage: 200 mg, Once
     Route: 048
     Dates: start: 20120227, end: 20120227
  4. INEGY [Concomitant]
     Indication: PRODUCT USED FOR UNKNOWN INDICATION
     Dosage: UNK
     Route: 048
  5. TAREG [Concomitant]
     Indication: PRODUCT USED FOR UNKNOWN INDICATION
     Dosage: 40 mg, qd
     Route: 048
  6. FOSAMAX [Concomitant]
     Indication: PRODUCT USED FOR UNKNOWN INDICATION
     Dosage: 1 DF, qw
     Route: 048
  7. STILNOX [Concomitant]
     Indication: PRODUCT USED FOR UNKNOWN INDICATION
     Dosage: 1 DF, qd
     Route: 048
  8. AMOXICILLIN [Concomitant]
     Indication: OROPHARYNGEAL PAIN
     Dosage: UNK
     Dates: start: 2012, end: 201202

REACTIONS (2)
  - Torsade de pointes [Recovered/Resolved]
  - Loss of consciousness [None]
